FAERS Safety Report 7294356-2 (Version None)
Quarter: 2011Q1

REPORT INFORMATION
  Report Type: 
  Country: None (occurrence: None)
  Receive Date: 20110215
  Receipt Date: 20110207
  Transmission Date: 20110831
  Serious: Yes (Hospitalization, Other)
  Sender: FDA-Public Use
  Company Number: GB-AMGEN-GBRSP2010008639

PATIENT
  Age: 58 Year
  Sex: Male

DRUGS (6)
  1. LEFLUNOMIDE [Concomitant]
     Dosage: 10 MG, UNK
     Route: 048
     Dates: start: 20050701
  2. ALLOPURINOL [Concomitant]
     Dosage: UNK
  3. RABEPRAZOLE SODIUM [Concomitant]
     Dosage: UNK
  4. AMLODIPINE [Concomitant]
     Dosage: UNK
  5. ENBREL [Suspect]
     Indication: PSORIATIC ARTHROPATHY
     Dosage: 50 MG, WEEKLY
     Route: 058
     Dates: start: 20060101, end: 20090501
  6. DICLOFENAC [Concomitant]
     Dosage: UNK

REACTIONS (1)
  - PROSTATE CANCER [None]
